FAERS Safety Report 10236309 (Version 2)
Quarter: 2014Q2

REPORT INFORMATION
  Report Type: Spontaneous
  Country: JP (occurrence: JP)
  Receive Date: 20140613
  Receipt Date: 20140618
  Transmission Date: 20141212
  Serious: Yes (Hospitalization)
  Sender: FDA-Public Use
  Company Number: JP-ELI_LILLY_AND_COMPANY-JP201406002506

PATIENT
  Age: 68 Year
  Sex: 0

DRUGS (4)
  1. CYMBALTA [Suspect]
     Indication: DEPRESSION
     Dosage: 20 MG, EACH EVENING
     Route: 048
     Dates: start: 201308
  2. CYMBALTA [Suspect]
     Indication: DIABETIC NEUROPATHY
  3. MECOBALAMIN [Concomitant]
     Route: 048
  4. METFORMIN HYDROCHLORIDE [Concomitant]
     Indication: DIABETES MELLITUS
     Dosage: UNK
     Route: 048

REACTIONS (1)
  - Varices oesophageal [Not Recovered/Not Resolved]
